FAERS Safety Report 12896344 (Version 1)
Quarter: 2016Q4

REPORT INFORMATION
  Report Type: Spontaneous
  Country: US (occurrence: US)
  Receive Date: 20161031
  Receipt Date: 20161031
  Transmission Date: 20170207
  Serious: No
  Sender: FDA-Public Use
  Company Number: US-JAZZ-2016-US-016319

PATIENT
  Sex: Female

DRUGS (31)
  1. CLONAZEPAM. [Suspect]
     Active Substance: CLONAZEPAM
     Indication: PRODUCT USED FOR UNKNOWN INDICATION
  2. QUETIAPINE FUMARATE. [Suspect]
     Active Substance: QUETIAPINE FUMARATE
     Indication: PRODUCT USED FOR UNKNOWN INDICATION
  3. SULFACETAMIDE SODIUM. [Concomitant]
     Active Substance: SULFACETAMIDE SODIUM
  4. MIDODRINE HCL [Concomitant]
     Active Substance: MIDODRINE HYDROCHLORIDE
  5. LYRICA [Concomitant]
     Active Substance: PREGABALIN
  6. GABAPENTIN. [Concomitant]
     Active Substance: GABAPENTIN
  7. MOVANTIK [Concomitant]
     Active Substance: NALOXEGOL OXALATE
  8. VITAMIN D3 [Concomitant]
     Active Substance: CHOLECALCIFEROL
  9. FENTORA [Concomitant]
     Active Substance: FENTANYL CITRATE
  10. XYREM [Suspect]
     Active Substance: SODIUM OXYBATE
     Dosage: 4.5 G, BID
     Route: 048
     Dates: start: 201509
  11. PROPRANOLOL [Concomitant]
     Active Substance: PROPRANOLOL\PROPRANOLOL HYDROCHLORIDE
  12. XYREM [Suspect]
     Active Substance: SODIUM OXYBATE
     Indication: NARCOLEPSY
     Dosage: 4 G, BID
     Route: 048
     Dates: start: 200911, end: 2009
  13. DENTALL [Concomitant]
  14. DIFFERIN [Concomitant]
     Active Substance: ADAPALENE
  15. MAXALT [Concomitant]
     Active Substance: RIZATRIPTAN BENZOATE
  16. CYMBALTA [Concomitant]
     Active Substance: DULOXETINE HYDROCHLORIDE
  17. BISACODYL. [Concomitant]
     Active Substance: BISACODYL
  18. PRENATE [Concomitant]
  19. RELISTOR [Concomitant]
     Active Substance: METHYLNALTREXONE BROMIDE
  20. ALENDRONATE SODIUM. [Concomitant]
     Active Substance: ALENDRONATE SODIUM
  21. XYREM [Suspect]
     Active Substance: SODIUM OXYBATE
     Dosage: 2.25 G, BID
     Route: 048
     Dates: start: 201506, end: 201506
  22. SANCTURA [Concomitant]
     Active Substance: TROSPIUM CHLORIDE
  23. FLUOCINONIDE. [Concomitant]
     Active Substance: FLUOCINONIDE
  24. CLONIDINE HCL [Concomitant]
     Active Substance: CLONIDINE HYDROCHLORIDE
  25. RIZATRIPTAN. [Concomitant]
     Active Substance: RIZATRIPTAN
  26. TIZANIDINE. [Concomitant]
     Active Substance: TIZANIDINE
  27. METHADONE HCL [Concomitant]
     Active Substance: METHADONE HYDROCHLORIDE
  28. METOPROLOL. [Concomitant]
     Active Substance: METOPROLOL
  29. CLEOCIN T [Concomitant]
     Active Substance: CLINDAMYCIN PHOSPHATE
  30. XYREM [Suspect]
     Active Substance: SODIUM OXYBATE
     Dosage: DOSE ADJUSTMENTS
     Route: 048
     Dates: start: 201506, end: 201509
  31. YASMIN [Concomitant]
     Active Substance: DROSPIRENONE\ETHINYL ESTRADIOL

REACTIONS (4)
  - Unevaluable event [Unknown]
  - Body mass index decreased [Not Recovered/Not Resolved]
  - Drug ineffective [Unknown]
  - Wrong technique in product usage process [Unknown]
